FAERS Safety Report 7415441-8 (Version None)
Quarter: 2011Q2

REPORT INFORMATION
  Report Type: 
  Country: None (occurrence: None)
  Receive Date: 20110414
  Receipt Date: 20110402
  Transmission Date: 20111010
  Serious: Yes (Hospitalization, Other)
  Sender: FDA-Public Use
  Company Number: NP-PAR PHARMACEUTICAL, INC-2011SCPR002852

PATIENT
  Age: 27 Year
  Sex: Male

DRUGS (4)
  1. NIFEDIPINE [Concomitant]
     Indication: PROPHYLAXIS
     Dosage: 30 MG, DAILY
     Route: 065
  2. DEXAMETHASONE [Suspect]
     Indication: PROPHYLAXIS
     Dosage: 4MG TID
     Route: 065
  3. ACETAZOLAMIDE [Concomitant]
     Indication: PROPHYLAXIS
     Dosage: 250 BID
     Route: 065
  4. DEXAMETHASONE [Suspect]
     Dosage: 1 UNK, UNK
     Route: 051

REACTIONS (2)
  - DRUG WITHDRAWAL SYNDROME [None]
  - TOXICITY TO VARIOUS AGENTS [None]
